FAERS Safety Report 13899470 (Version 1)
Quarter: 2017Q3

REPORT INFORMATION
  Report Type: Report from Study
  Country: DE (occurrence: DE)
  Receive Date: 20170824
  Receipt Date: 20170824
  Transmission Date: 20171127
  Serious: Yes (Death)
  Sender: FDA-Public Use
  Company Number: DE-TEVA-798825GER

PATIENT
  Age: 53 Year
  Sex: Male

DRUGS (2)
  1. ENTECAVIR. [Suspect]
     Active Substance: ENTECAVIR
     Indication: HEPATITIS B
     Route: 065
     Dates: start: 201203
  2. TENOFOVIR [Suspect]
     Active Substance: TENOFOVIR
     Indication: HEPATITIS B
     Route: 065

REACTIONS (2)
  - Multiple-drug resistance [Fatal]
  - Hepatocellular carcinoma [Fatal]
